FAERS Safety Report 7904765-3 (Version None)
Quarter: 2011Q4

REPORT INFORMATION
  Report Type: 
  Country: None (occurrence: None)
  Receive Date: 20111109
  Receipt Date: 20111031
  Transmission Date: 20120403
  Serious: Yes (Hospitalization)
  Sender: FDA-Public Use
  Company Number: US-BAYER-2011-032899

PATIENT
  Age: 21 Year
  Sex: Female
  Weight: 54 kg

DRUGS (5)
  1. FLUOXETINE HCL [Concomitant]
     Dosage: UNK
     Dates: start: 20080101
  2. ACCUTANE [Concomitant]
     Dosage: UNK
     Dates: start: 20080101, end: 20090101
  3. CLONAZEPAM [Concomitant]
     Dosage: UNK
     Dates: start: 20080101
  4. CLARAVIS [Concomitant]
  5. YAZ [Suspect]
     Indication: ACNE
     Dosage: UNK
     Dates: start: 20060101, end: 20090101

REACTIONS (4)
  - PULMONARY EMBOLISM [None]
  - PAIN [None]
  - DEEP VEIN THROMBOSIS [None]
  - INJURY [None]
